FAERS Safety Report 22923601 (Version 2)
Quarter: 2023Q4

REPORT INFORMATION
  Report Type: Report from Study
  Country: BR (occurrence: BR)
  Receive Date: 20230908
  Receipt Date: 20231024
  Transmission Date: 20240110
  Serious: Yes (Other)
  Sender: FDA-Public Use
  Company Number: BR-Merck Healthcare KGaA-2023468552

PATIENT
  Age: 67 Year
  Sex: Male

DRUGS (3)
  1. CETUXIMAB [Suspect]
     Active Substance: CETUXIMAB
     Indication: Colon cancer metastatic
     Dosage: 500 MG/M2, OTHER (ONCE IN EVERY 14 DAYS)
     Route: 042
     Dates: start: 20221206, end: 20230502
  2. CETUXIMAB [Suspect]
     Active Substance: CETUXIMAB
     Dosage: UNK UNK, UNKNOWN
     Route: 065
     Dates: start: 202308
  3. CETUXIMAB [Suspect]
     Active Substance: CETUXIMAB
     Dosage: UNK UNK, UNKNOWN
     Route: 065
     Dates: start: 20230929

REACTIONS (2)
  - Dermatitis [Recovered/Resolved]
  - Off label use [Not Recovered/Not Resolved]

NARRATIVE: CASE EVENT DATE: 20221201
